FAERS Safety Report 10699745 (Version 2)
Quarter: 2015Q1

REPORT INFORMATION
  Report Type: Spontaneous
  Country: FR (occurrence: FR)
  Receive Date: 20150109
  Receipt Date: 20150121
  Transmission Date: 20150721
  Serious: Yes (Death, Hospitalization)
  Sender: FDA-Public Use
  Company Number: FR-AUROBINDO-AUR-APL-2015-00022

PATIENT
  Age: 81 Year
  Sex: Female

DRUGS (10)
  1. LORAZEPAM. [Suspect]
     Active Substance: LORAZEPAM
     Indication: PRODUCT USED FOR UNKNOWN INDICATION
     Dosage: UNK
     Route: 065
  2. CEPHALOSPORIN C [Suspect]
     Active Substance: CEPHALOSPORIN C
     Indication: PRODUCT USED FOR UNKNOWN INDICATION
     Dosage: UNK
     Route: 065
  3. HAMAMELIS [Suspect]
     Active Substance: HAMAMELIS VIRGINIANA LEAF
     Indication: PRODUCT USED FOR UNKNOWN INDICATION
     Dosage: UNK
     Route: 065
  4. APROVEL [Suspect]
     Active Substance: IRBESARTAN
     Indication: PRODUCT USED FOR UNKNOWN INDICATION
     Dosage: UNK
     Route: 065
  5. INEXIUM                            /01479302/ [Suspect]
     Active Substance: ESOMEPRAZOLE MAGNESIUM
     Indication: PRODUCT USED FOR UNKNOWN INDICATION
     Dosage: UNK
     Route: 065
  6. CHONDROSULF [Suspect]
     Active Substance: CHONDROITIN SULFATE (CHICKEN)
     Indication: PRODUCT USED FOR UNKNOWN INDICATION
     Dosage: UNK
     Route: 065
  7. AZITHROMYCIN [Concomitant]
     Active Substance: AZITHROMYCIN ANHYDROUS
     Dosage: 1 DF, 3 TIMES PER WEEK
     Route: 065
     Dates: start: 201307
  8. PAROXETINE ARROW 20 MG FILM-COATED TABLETS [Suspect]
     Active Substance: PAROXETINE\PAROXETINE HYDROCHLORIDE
     Indication: PRODUCT USED FOR UNKNOWN INDICATION
     Dosage: 20 MG, DAILY
     Route: 048
     Dates: start: 2013, end: 20140616
  9. ZITHROMAX [Suspect]
     Active Substance: AZITHROMYCIN DIHYDRATE
     Indication: BRONCHIECTASIS
     Dosage: 0.4286 DF, UNK
     Route: 048
     Dates: start: 201307, end: 20140516
  10. VENTOLINE /00139501/ [Suspect]
     Active Substance: ALBUTEROL
     Indication: PRODUCT USED FOR UNKNOWN INDICATION
     Dosage: UNK
     Route: 065

REACTIONS (6)
  - Orthopnoea [Unknown]
  - Cardio-respiratory arrest [Not Recovered/Not Resolved]
  - Infection [Unknown]
  - Cardiac disorder [Unknown]
  - Cardiac arrest [Fatal]
  - Electrocardiogram QT prolonged [Unknown]

NARRATIVE: CASE EVENT DATE: 20140616
